FAERS Safety Report 21038063 (Version 4)
Quarter: 2022Q3

REPORT INFORMATION
  Report Type: Report from Study
  Country: US (occurrence: US)
  Receive Date: 20220704
  Receipt Date: 20220929
  Transmission Date: 20221027
  Serious: No
  Sender: FDA-Public Use
  Company Number: US-NOVARTISTESTPH-NVSC2022US150890

PATIENT
  Sex: Female

DRUGS (2)
  1. COSENTYX [Suspect]
     Active Substance: SECUKINUMAB
     Indication: Juvenile psoriatic arthritis
     Dosage: 75 MG, QW, (ONCE WEEKLY FOR 5 WEEKS)
     Route: 058
     Dates: start: 20220527
  2. COSENTYX [Suspect]
     Active Substance: SECUKINUMAB
     Dosage: 75 MG, QMO, (ONCE EVERY 4 WEEKS)
     Route: 058

REACTIONS (2)
  - Injection site pain [Unknown]
  - Injection site discomfort [Unknown]
